FAERS Safety Report 8826163 (Version 1)
Quarter: 2012Q4

REPORT INFORMATION
  Report Type: 
  Country: US (occurrence: US)
  Receive Date: 20121005
  Receipt Date: 20121005
  Transmission Date: 20130627
  Serious: Yes (Hospitalization)
  Sender: FDA-Public Use
  Company Number: US-DX529-2012DX000216

PATIENT
  Age: 52 Year
  Sex: Female
  Weight: 74.84 kg

DRUGS (1)
  1. KALBITOR [Suspect]
     Indication: HEREDITARY ANGIOEDEMA
     Route: 058
     Dates: start: 20120918, end: 20120918

REACTIONS (2)
  - Bronchial hyperreactivity [Recovered/Resolved]
  - Off label use [Not Recovered/Not Resolved]
